FAERS Safety Report 16853747 (Version 2)
Quarter: 2020Q1

REPORT INFORMATION
  Report Type: Spontaneous
  Country: JP (occurrence: JP)
  Receive Date: 20190926
  Receipt Date: 20200214
  Transmission Date: 20200409
  Serious: No
  Sender: FDA-Public Use
  Company Number: JP-BEH-2019107404

PATIENT
  Age: 70 Year
  Sex: Male
  Weight: 61 kg

DRUGS (5)
  1. KINEDAK [Concomitant]
     Active Substance: EPALRESTAT
     Dosage: 150 MILLIGRAM
     Route: 048
  2. SEIBULE [Concomitant]
     Active Substance: MIGLITOL
     Dosage: 150 MILLIGRAM
     Route: 048
  3. FLUTIDE [Concomitant]
     Active Substance: FLUTICASONE PROPIONATE
  4. EQUA [Concomitant]
     Active Substance: VILDAGLIPTIN
     Dosage: 100 MILLIGRAM
     Route: 048
  5. HIZENTRA [Suspect]
     Active Substance: HUMAN IMMUNOGLOBULIN G
     Indication: CHRONIC INFLAMMATORY DEMYELINATING POLYRADICULONEUROPATHY
     Dosage: 12 GRAM, QW
     Route: 058
     Dates: start: 20190718

REACTIONS (1)
  - White blood cell count decreased [Recovered/Resolved]

NARRATIVE: CASE EVENT DATE: 20190905
